FAERS Safety Report 6031378-3 (Version None)
Quarter: 2009Q1

REPORT INFORMATION
  Report Type: 
  Country: None (occurrence: None)
  Receive Date: 20090108
  Receipt Date: 20090105
  Transmission Date: 20090719
  Serious: Yes (Hospitalization, Other)
  Sender: FDA-Public Use
  Company Number: PHHY2009CH00477

PATIENT
  Age: 64 Year
  Sex: Male

DRUGS (4)
  1. NEORAL [Suspect]
     Indication: GRAFT VERSUS HOST DISEASE
     Dosage: 100 MG/DAY
     Dates: start: 20070101
  2. CEFEPIME [Suspect]
     Dosage: 2000 MG/DAY
     Dates: start: 20081001, end: 20081029
  3. VALTREX [Suspect]
     Dosage: 500 MG/DAY
     Dates: start: 20081001, end: 20081001
  4. EFFEXOR [Suspect]
     Dosage: 37.5 MG/DAY
     Dates: start: 20081001, end: 20081029

REACTIONS (7)
  - BRONCHOPNEUMOPATHY [None]
  - CHRONIC OBSTRUCTIVE PULMONARY DISEASE [None]
  - CONFUSIONAL STATE [None]
  - DYSPNOEA [None]
  - IMMUNOSUPPRESSANT DRUG LEVEL INCREASED [None]
  - NUCLEAR MAGNETIC RESONANCE IMAGING BRAIN ABNORMAL [None]
  - PLEURAL EFFUSION [None]
